FAERS Safety Report 19110242 (Version 2)
Quarter: 2021Q2

REPORT INFORMATION
  Report Type: Other
  Country: US (occurrence: US)
  Receive Date: 20210408
  Receipt Date: 20210413
  Transmission Date: 20210717
  Serious: Yes (Hospitalization)
  Sender: FDA-Public Use
  Company Number: US-ROCHE-2797578

PATIENT
  Sex: Male
  Weight: 90.8 kg

DRUGS (8)
  1. BABY ASPIRIN [Concomitant]
     Active Substance: ASPIRIN
     Route: 048
     Dates: start: 2005
  2. AMLODIPINE [Concomitant]
     Active Substance: AMLODIPINE BESYLATE
     Indication: BLOOD PRESSURE MEASUREMENT
     Dosage: IN THE EVENING ;ONGOING: YES
     Route: 048
  3. CALCIUM [Concomitant]
     Active Substance: CALCIUM
     Dosage: ONGOING: YES
     Route: 048
     Dates: start: 2005
  4. VITAMIN D3 [Concomitant]
     Active Substance: CHOLECALCIFEROL
     Route: 048
     Dates: start: 2005
  5. BENADRYL [Concomitant]
     Active Substance: DIPHENHYDRAMINE HYDROCHLORIDE
  6. OCREVUS [Suspect]
     Active Substance: OCRELIZUMAB
     Indication: RELAPSING-REMITTING MULTIPLE SCLEROSIS
     Dosage: ONGOING: YES, DATES OF TREATMENT : 27?FEB?2019, 26?SEP?2019, 28?MAY?2020, 01?DEC?2020,
     Route: 042
     Dates: start: 201803
  7. METOPROLOL. [Concomitant]
     Active Substance: METOPROLOL
     Route: 048
  8. VITAMIN C [Concomitant]
     Active Substance: ASCORBIC ACID
     Dosage: ONGOING: YES
     Route: 048
     Dates: start: 2005

REACTIONS (3)
  - Atrial fibrillation [Not Recovered/Not Resolved]
  - Mitral valve incompetence [Recovered/Resolved]
  - Weight increased [Unknown]

NARRATIVE: CASE EVENT DATE: 2020
